FAERS Safety Report 23581600 (Version 22)
Quarter: 2025Q1

REPORT INFORMATION
  Report Type: Spontaneous
  Country: IN (occurrence: IN)
  Receive Date: 20240229
  Receipt Date: 20250328
  Transmission Date: 20250409
  Serious: Yes (Other)
  Sender: PFIZER
  Company Number: IN-PFIZER INC-PV202400027046

PATIENT
  Age: 56 Year
  Sex: Male

DRUGS (1)
  1. LORLATINIB [Suspect]
     Active Substance: LORLATINIB
     Indication: Lung adenocarcinoma
     Dosage: 100 MG, 1X/DAY
     Route: 048
     Dates: start: 20240222

REACTIONS (61)
  - Pneumonia [Recovered/Resolved]
  - Syncope [Recovered/Resolved]
  - Flatulence [Unknown]
  - Abdominal distension [Unknown]
  - Dyspepsia [Not Recovered/Not Resolved]
  - Anxiety [Unknown]
  - Stress [Not Recovered/Not Resolved]
  - Pleural effusion [Not Recovered/Not Resolved]
  - Dyspnoea [Unknown]
  - Sputum increased [Recovered/Resolved]
  - Haemoptysis [Recovered/Resolved]
  - Cough [Recovered/Resolved]
  - Asthma [Not Recovered/Not Resolved]
  - Decreased appetite [Unknown]
  - Sleep disorder [Unknown]
  - Haemoglobin decreased [Unknown]
  - Pain [Not Recovered/Not Resolved]
  - Nausea [Recovered/Resolved]
  - Blood glucose decreased [Unknown]
  - Asthenia [Not Recovered/Not Resolved]
  - Blood cholesterol increased [Unknown]
  - Hyperhidrosis [Recovered/Resolved]
  - Memory impairment [Unknown]
  - Hypoaesthesia [Unknown]
  - Arthralgia [Unknown]
  - Muscle strain [Recovered/Resolved]
  - Pain in extremity [Recovered/Resolved]
  - Fatigue [Recovering/Resolving]
  - Pulmonary pain [Unknown]
  - Depression [Not Recovered/Not Resolved]
  - Hunger [Not Recovered/Not Resolved]
  - Negative thoughts [Unknown]
  - Musculoskeletal chest pain [Not Recovered/Not Resolved]
  - Procedural pain [Unknown]
  - Chest pain [Recovered/Resolved]
  - Low density lipoprotein increased [Not Recovered/Not Resolved]
  - Sputum increased [Unknown]
  - Tension [Unknown]
  - Irritability [Unknown]
  - Mood swings [Unknown]
  - Blood calcium decreased [Unknown]
  - Somnolence [Not Recovered/Not Resolved]
  - Tooth erosion [Not Recovered/Not Resolved]
  - Nervous system disorder [Not Recovered/Not Resolved]
  - Musculoskeletal stiffness [Not Recovered/Not Resolved]
  - Arthralgia [Not Recovered/Not Resolved]
  - Blood iron decreased [Not Recovered/Not Resolved]
  - Blood triglycerides increased [Not Recovered/Not Resolved]
  - Dyspnoea exertional [Not Recovered/Not Resolved]
  - Blood glucose increased [Not Recovered/Not Resolved]
  - Blood test abnormal [Not Recovered/Not Resolved]
  - Vitamin D decreased [Not Recovered/Not Resolved]
  - C-reactive protein increased [Not Recovered/Not Resolved]
  - Lipids increased [Not Recovered/Not Resolved]
  - Renal function test abnormal [Not Recovered/Not Resolved]
  - Gait disturbance [Not Recovered/Not Resolved]
  - Weight increased [Not Recovered/Not Resolved]
  - Muscle tightness [Not Recovered/Not Resolved]
  - Iron deficiency [Not Recovered/Not Resolved]
  - Myalgia [Not Recovered/Not Resolved]
  - Bone pain [Not Recovered/Not Resolved]
